FAERS Safety Report 16074095 (Version 1)
Quarter: 2019Q1

REPORT INFORMATION
  Report Type: Spontaneous
  Country: IT (occurrence: IT)
  Receive Date: 20190314
  Receipt Date: 20190314
  Transmission Date: 20190418
  Serious: Yes (Other)
  Sender: FDA-Public Use
  Company Number: IT-TEVA-2019-IT-1022480

PATIENT
  Age: 49 Year
  Sex: Male

DRUGS (5)
  1. PERIDON [Concomitant]
     Active Substance: DOMPERIDONE
  2. PANTORC [Concomitant]
     Active Substance: PANTOPRAZOLE SODIUM
  3. [REAPTAN 10 MG/10 MG] COMPRESSE [Concomitant]
  4. CARDURA [Concomitant]
     Active Substance: DOXAZOSIN MESYLATE
  5. FLUOROURACIL. [Suspect]
     Active Substance: FLUOROURACIL
     Indication: GASTRIC CANCER
     Route: 065

REACTIONS (5)
  - Nausea [Unknown]
  - Cold sweat [Unknown]
  - Chest pain [Unknown]
  - Drug intolerance [Unknown]
  - Palpitations [Unknown]

NARRATIVE: CASE EVENT DATE: 20190201
